FAERS Safety Report 16015641 (Version 2)
Quarter: 2019Q1

REPORT INFORMATION
  Report Type: Spontaneous
  Country: US (occurrence: US)
  Receive Date: 20190228
  Receipt Date: 20190314
  Transmission Date: 20190418
  Serious: No
  Sender: FDA-Public Use
  Company Number: US-B.I. PHARMACEUTICALS,INC./RIDGEFIELD-2019-BI-007455

PATIENT
  Sex: Male

DRUGS (1)
  1. SPIRIVA RESPIMAT [Suspect]
     Active Substance: TIOTROPIUM BROMIDE
     Indication: PRODUCT USED FOR UNKNOWN INDICATION
     Dosage: FORM STRENGTH: 2.5 MCG; FORMULATION: INHALATION SPRAY?ACTION(S) TAKEN WITH PRODUCT: NOT REPORTED
     Route: 055

REACTIONS (2)
  - Dental caries [Unknown]
  - Tooth loss [Unknown]
